FAERS Safety Report 25639270 (Version 1)
Quarter: 2025Q3

REPORT INFORMATION
  Report Type: Spontaneous
  Country: GB (occurrence: GB)
  Receive Date: 20250804
  Receipt Date: 20250804
  Transmission Date: 20251021
  Serious: Yes (Life-Threatening, Hospitalization, Disabling, Other)
  Sender: ASTELLAS
  Company Number: None

PATIENT
  Age: 87 Year
  Sex: Female
  Weight: 68 kg

DRUGS (3)
  1. MIRABEGRON [Suspect]
     Active Substance: MIRABEGRON
     Indication: Product used for unknown indication
     Dosage: 25MG ONCE A DAY
     Route: 065
     Dates: start: 20241114, end: 20250714
  2. LERCANIDIPINE [Concomitant]
     Active Substance: LERCANIDIPINE
     Indication: Product used for unknown indication
     Route: 065
  3. CANDESARTAN [Concomitant]
     Active Substance: CANDESARTAN
     Indication: Product used for unknown indication
     Route: 065

REACTIONS (2)
  - Hypertension [Recovering/Resolving]
  - Haemorrhagic infarction [Unknown]

NARRATIVE: CASE EVENT DATE: 20250714
